FAERS Safety Report 10606559 (Version 2)
Quarter: 2014Q4

REPORT INFORMATION
  Report Type: Spontaneous
  Country: VN (occurrence: VN)
  Receive Date: 20141125
  Receipt Date: 20141202
  Transmission Date: 20150529
  Serious: Yes (Life-Threatening, Hospitalization, Other)
  Sender: FDA-Public Use
  Company Number: PHHY2014VN153279

PATIENT
  Age: 73 Year
  Sex: Female

DRUGS (4)
  1. GLUCOSAMIN//GLUCOSAMINE HYDROCHLORIDE [Concomitant]
     Indication: ARTHRITIS
     Dosage: 500 MG, BID
     Route: 048
  2. GLUCOSAMIN//GLUCOSAMINE HYDROCHLORIDE [Concomitant]
     Indication: OSTEOARTHRITIS
  3. SODIUM CHLORIDE. [Concomitant]
     Active Substance: SODIUM CHLORIDE
     Indication: PRODUCT USED FOR UNKNOWN INDICATION
     Dosage: 500 ML, UNK
     Route: 041
     Dates: start: 20141031
  4. ACLASTA [Suspect]
     Active Substance: ZOLEDRONIC ACID
     Indication: OSTEOPOROSIS
     Dosage: 5 MG, UNK
     Route: 042
     Dates: start: 20141031

REACTIONS (14)
  - Syncope [Unknown]
  - Blood pressure decreased [Unknown]
  - Fatigue [Recovered/Resolved]
  - Effusion [Recovered/Resolved]
  - Seizure [Recovered/Resolved]
  - Cyanosis [Recovered/Resolved]
  - Blood potassium decreased [Recovered/Resolved]
  - Musculoskeletal stiffness [Recovered/Resolved]
  - Blood calcium decreased [Recovered/Resolved]
  - Pyrexia [Recovered/Resolved]
  - Ventricular fibrillation [Recovered/Resolved]
  - Cardiac arrest [Recovered/Resolved]
  - Electrolyte imbalance [Recovered/Resolved]
  - Apnoea [Recovered/Resolved]

NARRATIVE: CASE EVENT DATE: 20141101
